FAERS Safety Report 5074682-8 (Version None)
Quarter: 2006Q3

REPORT INFORMATION
  Report Type: 
  Country: None (occurrence: None)
  Receive Date: 20060803
  Receipt Date: 20060726
  Transmission Date: 20061208
  Serious: Yes (Other)
  Sender: FDA-Public Use
  Company Number: US200604002470

PATIENT
  Age: 45 Year
  Sex: Male

DRUGS (3)
  1. PROZAC [Suspect]
     Indication: DEPRESSION
     Dosage: ORAL
     Route: 048
     Dates: start: 20060106
  2. ESZOPICLONE (ESZOPICLONE) [Concomitant]
  3. PAXIL [Concomitant]

REACTIONS (5)
  - BIPOLAR DISORDER [None]
  - DELUSION [None]
  - HOMICIDE [None]
  - MAJOR DEPRESSION [None]
  - SUICIDAL IDEATION [None]
